FAERS Safety Report 10562442 (Version 1)
Quarter: 2014Q4

REPORT INFORMATION
  Report Type: Spontaneous
  Country: US (occurrence: None)
  Receive Date: 20141103
  Receipt Date: 20141103
  Transmission Date: 20150529
  Serious: Yes (Hospitalization)
  Sender: FDA-Public Use
  Company Number: None

PATIENT
  Age: 59 Year
  Sex: Male
  Weight: 87.7 kg

DRUGS (2)
  1. LEUPROLIDE ACETATE. [Suspect]
     Active Substance: LEUPROLIDE ACETATE
  2. CASODEX [Suspect]
     Active Substance: BICALUTAMIDE
     Dosage: THIS IS THE DAILY DOSE IN MG^S THAT THE PATIENT TAKES.?

REACTIONS (4)
  - Pancreatitis [None]
  - Diabetes mellitus [None]
  - Gallbladder disorder [None]
  - Condition aggravated [None]

NARRATIVE: CASE EVENT DATE: 20141023
